FAERS Safety Report 10669879 (Version 2)
Quarter: 2014Q4

REPORT INFORMATION
  Report Type: Spontaneous
  Country: SI (occurrence: SI)
  Receive Date: 20141222
  Receipt Date: 20141222
  Transmission Date: 20150529
  Serious: Yes (Other)
  Sender: FDA-Public Use
  Company Number: SI-AMGEN-SVNSP2014081242

PATIENT
  Age: 73 Year
  Sex: Female

DRUGS (3)
  1. VITAMIN D                          /00107901/ [Concomitant]
     Active Substance: ERGOCALCIFEROL
     Dosage: UNK
  2. CALCIUM [Concomitant]
     Active Substance: CALCIUM
     Dosage: UNK
  3. PROLIA [Suspect]
     Active Substance: DENOSUMAB
     Indication: OSTEOPOROSIS POSTMENOPAUSAL
     Dosage: UNK
     Route: 065
     Dates: start: 20120515

REACTIONS (4)
  - Blood pressure fluctuation [Recovered/Resolved]
  - Tremor [Unknown]
  - Hypertension [Unknown]
  - Tinnitus [Unknown]

NARRATIVE: CASE EVENT DATE: 201205
